FAERS Safety Report 6222302-9 (Version None)
Quarter: 2009Q2

REPORT INFORMATION
  Report Type: 
  Country: None (occurrence: None)
  Receive Date: 20090611
  Receipt Date: 20090601
  Transmission Date: 20091009
  Serious: Yes (Other)
  Sender: FDA-Public Use
  Company Number: PHHY2009JP22209

PATIENT
  Sex: Female

DRUGS (1)
  1. NEORAL [Suspect]
     Indication: APLASIA PURE RED CELL
     Dosage: UNK
     Route: 048
     Dates: start: 20080901

REACTIONS (1)
  - TUMOUR MARKER INCREASED [None]
